FAERS Safety Report 7416949-1 (Version None)
Quarter: 2011Q2

REPORT INFORMATION
  Report Type: 
  Country: None (occurrence: None)
  Receive Date: 20110415
  Receipt Date: 20110411
  Transmission Date: 20111010
  Serious: Yes (Other)
  Sender: FDA-Public Use
  Company Number: US-ABBOTT-11P-163-0717180-00

PATIENT
  Sex: Female

DRUGS (4)
  1. HUMIRA [Suspect]
     Dates: start: 20110301
  2. LEVOTHYROXINE [Concomitant]
     Indication: HYPOTHYROIDISM
     Dosage: DAILY
     Route: 048
  3. HUMIRA [Suspect]
     Indication: MYALGIA
     Route: 058
     Dates: start: 20110201, end: 20110301
  4. NEMBUTAL [Concomitant]
     Indication: PRODUCT USED FOR UNKNOWN INDICATION

REACTIONS (13)
  - DECREASED APPETITE [None]
  - MYALGIA [None]
  - EAR PAIN [None]
  - EAR INFECTION [None]
  - DEAFNESS UNILATERAL [None]
  - NASOPHARYNGITIS [None]
  - EAR CONGESTION [None]
  - COUGH [None]
  - PNEUMONIA PRIMARY ATYPICAL [None]
  - RHINORRHOEA [None]
  - LYMPHADENOPATHY [None]
  - PYREXIA [None]
  - HEADACHE [None]
